FAERS Safety Report 16120359 (Version 1)
Quarter: 2019Q1

REPORT INFORMATION
  Report Type: Spontaneous
  Country: FR (occurrence: FR)
  Receive Date: 20190326
  Receipt Date: 20190326
  Transmission Date: 20190418
  Serious: Yes (Hospitalization)
  Sender: FDA-Public Use
  Company Number: PHHY2019FR068109

PATIENT
  Sex: Male

DRUGS (2)
  1. TAFINLAR [Suspect]
     Active Substance: DABRAFENIB MESYLATE
     Indication: PRODUCT USED FOR UNKNOWN INDICATION
     Dosage: UNK
     Route: 065
     Dates: start: 20170831
  2. MEKINIST [Suspect]
     Active Substance: TRAMETINIB DIMETHYL SULFOXIDE
     Indication: PRODUCT USED FOR UNKNOWN INDICATION
     Dosage: UNK
     Route: 065
     Dates: start: 20170831

REACTIONS (13)
  - Skin disorder [Not Recovered/Not Resolved]
  - Erythema [Unknown]
  - Insomnia [Unknown]
  - Skin toxicity [Unknown]
  - Pruritus [Unknown]
  - Dermatitis bullous [Unknown]
  - Xerosis [Unknown]
  - Dyspnoea [Unknown]
  - Eczema [Unknown]
  - Epilepsy [Unknown]
  - Brain oedema [Unknown]
  - Photopsia [Unknown]
  - Cardiotoxicity [Unknown]

NARRATIVE: CASE EVENT DATE: 201804
